FAERS Safety Report 7199554-4 (Version None)
Quarter: 2010Q4

REPORT INFORMATION
  Report Type: 
  Country: None (occurrence: None)
  Receive Date: 20101228
  Receipt Date: 20101222
  Transmission Date: 20110411
  Serious: Yes (Death)
  Sender: FDA-Public Use
  Company Number: PHHY2010CL87554

PATIENT
  Sex: Female

DRUGS (1)
  1. TAREG D [Suspect]
     Dosage: 160/12.5 MG

REACTIONS (1)
  - DEATH [None]
